FAERS Safety Report 13759446 (Version 3)
Quarter: 2017Q3

REPORT INFORMATION
  Report Type: Spontaneous
  Country: US (occurrence: US)
  Receive Date: 20170717
  Receipt Date: 20170911
  Transmission Date: 20171127
  Serious: No
  Sender: FDA-Public Use
  Company Number: US-PFIZER INC-2017310150

PATIENT
  Age: 48 Year
  Sex: Female
  Weight: 65 kg

DRUGS (1)
  1. ADVIL [Suspect]
     Active Substance: IBUPROFEN
     Indication: HEADACHE
     Dosage: 200 MG, TABLET
     Dates: start: 201706

REACTIONS (4)
  - Product physical issue [Unknown]
  - Product quality issue [Unknown]
  - Poor quality drug administered [Unknown]
  - Abdominal pain upper [Not Recovered/Not Resolved]

NARRATIVE: CASE EVENT DATE: 20170712
